FAERS Safety Report 10035620 (Version 3)
Quarter: 2014Q2

REPORT INFORMATION
  Report Type: Report from Study
  Country: JP (occurrence: JP)
  Receive Date: 20140325
  Receipt Date: 20140506
  Transmission Date: 20141212
  Serious: Yes (Hospitalization)
  Sender: FDA-Public Use
  Company Number: JP-B.I. PHARMACEUTICALS,INC./RIDGEFIELD-2014-BI-12586GD

PATIENT
  Age: 69 Year
  Sex: Male
  Weight: 83 kg

DRUGS (6)
  1. PRADAXA [Suspect]
     Indication: ATRIAL FIBRILLATION
     Dosage: 300 MG
     Route: 048
     Dates: start: 201302
  2. TRICHLORMETHIAZIDE [Concomitant]
     Indication: HYPERTENSION
     Dosage: 1 MG
     Route: 048
     Dates: end: 20130716
  3. SELARA [Concomitant]
     Indication: HYPERTENSION
     Dosage: 50 MG
     Route: 048
     Dates: start: 20130212, end: 20130716
  4. DIGOXIN [Concomitant]
     Indication: ATRIAL FIBRILLATION
     Dosage: 0.125 MG
     Route: 048
     Dates: start: 20130212, end: 20130716
  5. LANSOPRAZOLE-OD [Concomitant]
     Indication: PROPHYLAXIS
     Dosage: 15 MG
     Route: 048
     Dates: start: 20130212, end: 20130716
  6. PARIET [Concomitant]
     Indication: PROPHYLAXIS
     Dosage: 10 MG
     Route: 048
     Dates: start: 20130716

REACTIONS (1)
  - Cerebral infarction [Not Recovered/Not Resolved]
